FAERS Safety Report 6882877-3 (Version None)
Quarter: 2010Q3

REPORT INFORMATION
  Report Type: 
  Country: None (occurrence: None)
  Receive Date: 20100702
  Receipt Date: 20090624
  Transmission Date: 20110219
  Serious: Yes (Other)
  Sender: FDA-Public Use
  Company Number: 2009234837

PATIENT
  Age: 35 Year
  Sex: Female
  Weight: 108.8 kg

DRUGS (11)
  1. ZOLOFT [Suspect]
     Indication: DEPRESSION
     Dosage: 25 MG, 1X/DAY
     Dates: start: 20090501
  2. NASAREL [Concomitant]
  3. NEURONTIN [Concomitant]
  4. RELAFEN [Concomitant]
  5. TERAZOSIN HCL [Concomitant]
  6. PAMELOR [Concomitant]
  7. INDERAL [Concomitant]
  8. FLEXERIL [Concomitant]
  9. PEPCID [Concomitant]
  10. FIORICET (PARACETAMOL,CAFFEINE,BUTALBITAL) [Concomitant]
  11. PERCOCET [Concomitant]

REACTIONS (4)
  - APATHY [None]
  - DEPRESSED MOOD [None]
  - INTENTIONAL SELF-INJURY [None]
  - SUICIDAL IDEATION [None]
